FAERS Safety Report 4733015-4 (Version None)
Quarter: 2005Q3

REPORT INFORMATION
  Report Type: 
  Country: None (occurrence: None)
  Receive Date: 20050801
  Receipt Date: 20050719
  Transmission Date: 20060218
  Serious: Yes (Hospitalization)
  Sender: FDA-Public Use
  Company Number: 2005105041

PATIENT
  Age: 69 Year
  Sex: Male

DRUGS (7)
  1. ZOLOFT [Suspect]
     Indication: ILL-DEFINED DISORDER
     Dosage: 50 MG (1 D), ORAL
     Route: 048
     Dates: end: 20050407
  2. ATORVASTATIN CALCIUM [Suspect]
     Indication: ILL-DEFINED DISORDER
     Dosage: 10 MG (1 D), ORAL
     Route: 048
     Dates: end: 20050407
  3. VERAPAMIL [Suspect]
     Indication: ILL-DEFINED DISORDER
     Dosage: 1 DOSE FORM (1 IN 1 D)
     Dates: end: 20050407
  4. CORTANCYL (PREDNISONE) [Concomitant]
  5. RAMIPRIL [Concomitant]
  6. PLAVIX [Concomitant]
  7. INSULIN [Concomitant]

REACTIONS (4)
  - ABDOMINAL PAIN [None]
  - ANTINUCLEAR ANTIBODY POSITIVE [None]
  - HEPATIC STEATOSIS [None]
  - HEPATOTOXICITY [None]
